FAERS Safety Report 9091999 (Version 1)
Quarter: 2013Q1

REPORT INFORMATION
  Report Type: Report from Study
  Country: US (occurrence: US)
  Receive Date: 20130131
  Receipt Date: 20130131
  Transmission Date: 20140127
  Serious: No
  Sender: FDA-Public Use
  Company Number: US-ABBOTT-12P-163-1003637-00

PATIENT
  Age: 7 Year
  Sex: Male

DRUGS (3)
  1. HUMIRA [Suspect]
     Indication: UVEITIS
     Dates: start: 201208
  2. METHOTREXATE [Concomitant]
     Indication: UVEITIS
     Dosage: WEEKLY
  3. FOLIC ACID [Concomitant]
     Indication: VITAMIN SUPPLEMENTATION

REACTIONS (5)
  - Injection site pain [Unknown]
  - Crying [Unknown]
  - Drug ineffective [Unknown]
  - Off label use [Not Recovered/Not Resolved]
  - Emotional disorder [Not Recovered/Not Resolved]
